FAERS Safety Report 14336477 (Version 1)
Quarter: 2017Q4

REPORT INFORMATION
  Report Type: Spontaneous
  Country: US (occurrence: US)
  Receive Date: 20171229
  Receipt Date: 20171229
  Transmission Date: 20180321
  Serious: Yes (Other)
  Sender: FDA-Public Use
  Company Number: PHEH2017US041572

PATIENT
  Age: 30 Year
  Sex: Male

DRUGS (1)
  1. DEXTROAMPHET SACCHARAT, AMPHET ASPARTATE, DEXTROAMPHET SULFATE AND AMPHET SULFAT [Suspect]
     Active Substance: AMPHETAMINE ASPARTATE\AMPHETAMINE SULFATE\DEXTROAMPHETAMINE SACCHARATE\DEXTROAMPHETAMINE SULFATE
     Indication: ATTENTION DEFICIT/HYPERACTIVITY DISORDER
     Dosage: UNK
     Route: 065

REACTIONS (11)
  - Agitation [Unknown]
  - Restlessness [Unknown]
  - Overdose [Unknown]
  - Dependence [Unknown]
  - Hallucination [Unknown]
  - Paranoia [Unknown]
  - Personality change [Unknown]
  - Depression [Unknown]
  - Irritability [Unknown]
  - Insomnia [Unknown]
  - Mood swings [Unknown]
